FAERS Safety Report 9813985 (Version 1)
Quarter: 2014Q1

REPORT INFORMATION
  Report Type: Spontaneous
  Country: US (occurrence: US)
  Receive Date: 20140113
  Receipt Date: 20140113
  Transmission Date: 20141002
  Serious: No
  Sender: FDA-Public Use
  Company Number: US-ASTELLAS-2013US010538

PATIENT
  Age: 80 Year
  Sex: Male

DRUGS (1)
  1. MYRBETRIQ [Suspect]
     Indication: PRODUCT USED FOR UNKNOWN INDICATION
     Dosage: 50 MG, UID/QD
     Route: 048
     Dates: start: 20131002, end: 20131003

REACTIONS (3)
  - Intentional drug misuse [Unknown]
  - Dysuria [Unknown]
  - Diarrhoea [Unknown]
